FAERS Safety Report 10065058 (Version 1)
Quarter: 2014Q2

REPORT INFORMATION
  Report Type: Spontaneous
  Country: US (occurrence: US)
  Receive Date: 20140408
  Receipt Date: 20140408
  Transmission Date: 20141212
  Serious: Yes (Other)
  Sender: FDA-Public Use
  Company Number: US-ASTRAZENECA-2014SE22764

PATIENT
  Age: 61 Year
  Sex: Female
  Weight: 93 kg

DRUGS (2)
  1. SYMBICORT PMDI [Suspect]
     Indication: ASTHMA
     Dosage: 160/4.5 MCG, 2 PUFFS BID
     Route: 055
     Dates: start: 201402
  2. SYMBICORT PMDI [Suspect]
     Indication: CHRONIC OBSTRUCTIVE PULMONARY DISEASE
     Dosage: 160/4.5 MCG, 2 PUFFS BID
     Route: 055
     Dates: start: 201402

REACTIONS (1)
  - Cataract [Unknown]
